FAERS Safety Report 13970774 (Version 5)
Quarter: 2018Q1

REPORT INFORMATION
  Report Type: Spontaneous
  Country: BE (occurrence: BE)
  Receive Date: 20170914
  Receipt Date: 20180212
  Transmission Date: 20180508
  Serious: Yes (Other)
  Sender: FDA-Public Use
  Company Number: BE-SA-2017SA166875

PATIENT
  Age: 4 Month
  Sex: Male

DRUGS (1)
  1. LEMTRADA [Suspect]
     Active Substance: ALEMTUZUMAB
     Route: 064

REACTIONS (4)
  - Foetal exposure timing unspecified [Unknown]
  - Deafness unilateral [Unknown]
  - Exposure via breast milk [Unknown]
  - Anomaly of external ear congenital [Unknown]

NARRATIVE: CASE EVENT DATE: 20170623
